FAERS Safety Report 16789223 (Version 1)
Quarter: 2019Q3

REPORT INFORMATION
  Report Type: Report from Study
  Country: CA (occurrence: CA)
  Receive Date: 20190910
  Receipt Date: 20190910
  Transmission Date: 20191005
  Serious: Yes (Hospitalization, Other)
  Sender: FDA-Public Use
  Company Number: CA-BRISTOL-MYERS SQUIBB COMPANY-BMS-2018-083045

PATIENT
  Age: 64 Year
  Sex: Male

DRUGS (1)
  1. ABATACEPT [Suspect]
     Active Substance: ABATACEPT
     Indication: RHEUMATOID ARTHRITIS
     Dosage: 125 MG, QWK
     Route: 058
     Dates: start: 20180531

REACTIONS (9)
  - Oedema [Not Recovered/Not Resolved]
  - Peripheral swelling [Unknown]
  - Neuralgia [Unknown]
  - Pain in extremity [Unknown]
  - Lower respiratory tract infection [Recovering/Resolving]
  - Pain [Not Recovered/Not Resolved]
  - Cardiac disorder [Recovered/Resolved]
  - Inflammation [Not Recovered/Not Resolved]
  - Arthritis [Unknown]

NARRATIVE: CASE EVENT DATE: 20180905
